FAERS Safety Report 8774577 (Version 3)
Quarter: 2013Q1

REPORT INFORMATION
  Report Type: Report from Study
  Country: JP (occurrence: JP)
  Receive Date: 20120907
  Receipt Date: 20130218
  Transmission Date: 20140127
  Serious: Yes (Other)
  Sender: FDA-Public Use
  Company Number: JP-009507513-2012SP020880

PATIENT
  Age: 39 Year
  Sex: Female
  Weight: 55 kg

DRUGS (10)
  1. PEGINTRON [Suspect]
     Indication: CHRONIC HEPATITIS C
     Dosage: 1.5MICROGRAM PER KILOGRAM, QW
     Route: 058
     Dates: start: 20120217, end: 20120705
  2. PEGINTRON [Suspect]
     Dosage: 1.3 MICROGRAM PER KILOGRAM, UNK
     Route: 058
     Dates: start: 20120706, end: 20120719
  3. PEGINTRON [Suspect]
     Dosage: 1.1 MICROGRAM PER KILOGRAM, QW
     Route: 058
     Dates: start: 20120720, end: 20120726
  4. PEGINTRON [Suspect]
     Dosage: 1.3 MICROGRAM PER KILOGRAM, QW
     Route: 058
     Dates: start: 20120727, end: 20120802
  5. PEGINTRON [Suspect]
     Dosage: UNK
  6. REBETOL [Suspect]
     Indication: CHRONIC HEPATITIS C
     Dosage: 400 MG, QD
     Route: 048
     Dates: start: 20120217, end: 20120524
  7. REBETOL [Suspect]
     Dosage: 600 MG, QD
     Route: 048
     Dates: start: 20120525, end: 20120802
  8. TELAVIC [Suspect]
     Indication: CHRONIC HEPATITIS C
     Dosage: 2250 MG, QD
     Route: 048
     Dates: start: 20120217, end: 20120322
  9. TELAVIC [Suspect]
     Dosage: 1500 MG, QD,
     Route: 048
     Dates: start: 20120323, end: 20120510
  10. RIBALL [Concomitant]
     Indication: BLOOD URIC ACID INCREASED
     Dosage: RIBALL (100) 2 TABLETS.UPDATE(13JUN2012):DOSE,FREQUENCY,ROUTE
     Route: 048
     Dates: start: 20120316

REACTIONS (4)
  - Anaemia [Not Recovered/Not Resolved]
  - Anaemia [Recovered/Resolved]
  - Rash [Recovering/Resolving]
  - White blood cell count decreased [Recovered/Resolved]
